FAERS Safety Report 21628813 (Version 1)
Quarter: 2022Q4

REPORT INFORMATION
  Report Type: Report from Study
  Country: US (occurrence: US)
  Receive Date: 20221122
  Receipt Date: 20221122
  Transmission Date: 20230113
  Serious: Yes (Other)
  Sender: FDA-Public Use
  Company Number: US-ABBVIE-22K-163-4458771-00

PATIENT
  Sex: Female
  Weight: 72.6 kg

DRUGS (2)
  1. HUMIRA [Suspect]
     Active Substance: ADALIMUMAB
     Indication: Product used for unknown indication
     Route: 058
  2. MODERNA COVID-19 VACCINE [Concomitant]
     Active Substance: ELASOMERAN
     Indication: COVID-19 immunisation
     Dosage: TIME INTERVAL: 1 TOTAL: FREQUENCY- ONE IN ONCE
     Route: 030

REACTIONS (3)
  - Radiation skin injury [Unknown]
  - Wound [Unknown]
  - Impaired healing [Unknown]

NARRATIVE: CASE EVENT DATE: 20110101
